FAERS Safety Report 6074430-9 (Version None)
Quarter: 2009Q1

REPORT INFORMATION
  Report Type: 
  Country: None (occurrence: None)
  Receive Date: 20090206
  Receipt Date: 20090108
  Transmission Date: 20090719
  Serious: Yes (Death)
  Sender: FDA-Public Use
  Company Number: 1000003737

PATIENT
  Age: 48 Year
  Sex: Male

DRUGS (6)
  1. ESCITALOPRAM [Suspect]
  2. ALPRAZOLAM [Suspect]
  3. LAMOTRIGINE [Suspect]
  4. GABAPENTIN [Suspect]
  5. ETHANOL [Suspect]
  6. CARBON BLACK [Suspect]

REACTIONS (2)
  - ASPIRATION [None]
  - COMPLETED SUICIDE [None]
